FAERS Safety Report 9253814 (Version 1)
Quarter: 2013Q2

REPORT INFORMATION
  Report Type: Spontaneous
  Country: US (occurrence: US)
  Receive Date: 20130425
  Receipt Date: 20130425
  Transmission Date: 20140414
  Serious: Yes (Other)
  Sender: FDA-Public Use
  Company Number: US-PFIZER INC-2013128838

PATIENT
  Age: 18 Year
  Sex: Male

DRUGS (1)
  1. ZOLOFT [Suspect]
     Indication: ANXIETY DISORDER
     Dosage: 100 MG, 1X/DAY
     Route: 048
     Dates: start: 201210

REACTIONS (1)
  - Syncope [Unknown]
